FAERS Safety Report 7562401-2 (Version None)
Quarter: 2011Q2

REPORT INFORMATION
  Report Type: 
  Country: None (occurrence: None)
  Receive Date: 20110614
  Receipt Date: 20110601
  Transmission Date: 20111010
  Serious: Yes (Hospitalization, Other)
  Sender: FDA-Public Use
  Company Number: 2011P1006953

PATIENT
  Age: 65 Year
  Sex: Female
  Weight: 78.0187 kg

DRUGS (13)
  1. HR [Concomitant]
  2. MELOXICAM [Concomitant]
  3. CARBAMAZEPINE [Suspect]
     Dosage: 200 MG;BID;PO
     Route: 048
     Dates: start: 20090101
  4. NITROGLYCERIN TRANSDERMAL 0.2 MG/ [Concomitant]
  5. ACTONEL [Concomitant]
  6. PREVACID [Concomitant]
  7. AQUAPHOR [Concomitant]
  8. ULTRAC [Concomitant]
  9. CARTIA XT 180 MG [Concomitant]
  10. ACOTPLUS [Concomitant]
  11. CALCIUM 600 PHUS D [Concomitant]
  12. FUROSEMIDE [Concomitant]
  13. METOPROLOH 100 MG [Concomitant]

REACTIONS (9)
  - MOTOR DYSFUNCTION [None]
  - POOR PERSONAL HYGIENE [None]
  - TOXIC EPIDERMAL NECROLYSIS [None]
  - GAIT DISTURBANCE [None]
  - ACTIVITIES OF DAILY LIVING IMPAIRED [None]
  - MEMORY IMPAIRMENT [None]
  - BALANCE DISORDER [None]
  - TOXICITY TO VARIOUS AGENTS [None]
  - INCONTINENCE [None]
